FAERS Safety Report 5147230-1 (Version None)
Quarter: 2006Q4

REPORT INFORMATION
  Report Type: 
  Country: None (occurrence: None)
  Receive Date: 20061102
  Receipt Date: 20061023
  Transmission Date: 20070319
  Serious: Yes (Other)
  Sender: FDA-Public Use
  Company Number: 2006BI011817

PATIENT
  Age: 52 Year
  Sex: Female

DRUGS (8)
  1. AVONEX [Suspect]
     Indication: MULTIPLE SCLEROSIS
     Dosage: 30 UG;QW;IM
     Route: 030
     Dates: start: 20011010
  2. FIORICET [Concomitant]
  3. ENTOCORT [Concomitant]
  4. MULTI-VITAMIN [Concomitant]
  5. CALCIUM [Concomitant]
  6. ASCORBIC ACID [Concomitant]
  7. DETROL [Concomitant]
  8. EXCEDRIN (MIGRAINE) [Concomitant]

REACTIONS (1)
  - MALIGNANT MELANOMA [None]
